APPROVED DRUG PRODUCT: ISUPREL
Active Ingredient: ISOPROTERENOL HYDROCHLORIDE
Strength: 10MG
Dosage Form/Route: TABLET;RECTAL, SUBLINGUAL
Application: N006328 | Product #001
Applicant: SANOFI AVENTIS US LLC
Approved: Approved Prior to Jan 1, 1982 | RLD: No | RS: No | Type: DISCN